FAERS Safety Report 4494787-X (Version None)
Quarter: 2004Q4

REPORT INFORMATION
  Report Type: 
  Country: None (occurrence: None)
  Receive Date: 20041103
  Receipt Date: 20041022
  Transmission Date: 20050328
  Serious: Yes (Hospitalization, Other)
  Sender: FDA-Public Use
  Company Number: A-US2004-05509

PATIENT
  Age: 67 Year
  Sex: Female
  Weight: 67.2 kg

DRUGS (7)
  1. TRACLEER [Suspect]
     Indication: PULMONARY HYPERTENSION
     Dosage: 125 MG, BID, ORAL; 62.5  MG, BID, ORAL
     Route: 048
     Dates: start: 20020401, end: 20020515
  2. TRACLEER [Suspect]
     Indication: PULMONARY HYPERTENSION
     Dosage: 125 MG, BID, ORAL; 62.5  MG, BID, ORAL
     Route: 048
     Dates: start: 20020516, end: 20040319
  3. LANTUS [Concomitant]
  4. HUMALOG [Concomitant]
  5. COUMADIN [Concomitant]
  6. NIFEDIPINE [Concomitant]
  7. ESTROGEN NOS (ESTROGEN NOS) [Concomitant]

REACTIONS (4)
  - DECREASED APPETITE [None]
  - DYSPNOEA EXERTIONAL [None]
  - HEPATITIS ACUTE [None]
  - UROSEPSIS [None]
